FAERS Safety Report 16919511 (Version 1)
Quarter: 2019Q4

REPORT INFORMATION
  Report Type: Spontaneous
  Country: US (occurrence: US)
  Receive Date: 20191014
  Receipt Date: 20191014
  Transmission Date: 20200122
  Serious: Yes (Hospitalization, Other)
  Sender: FDA-Public Use
  Company Number: None

PATIENT
  Age: 65 Year
  Sex: Female
  Weight: 44.1 kg

DRUGS (5)
  1. BENTYL [Suspect]
     Active Substance: DICYCLOMINE HYDROCHLORIDE
     Indication: CROHN^S DISEASE
     Dosage: ?          QUANTITY:15 TABLET(S);?
     Route: 048
     Dates: start: 20190816, end: 20190819
  2. CLONAZEPAM. [Concomitant]
     Active Substance: CLONAZEPAM
  3. SUMATRIPTAN SUCC [Concomitant]
     Active Substance: SUMATRIPTAN SUCCINATE
  4. MULTI-VITAMIN [Concomitant]
     Active Substance: .ALPHA.-TOCOPHEROL ACETATE, DL-\ASCORBIC ACID\CYANOCOBALAMIN\FLUORIDE ION\FOLIC ACID\NIACIN\PYRIDOXINE\RIBOFLAVIN\THIAMINE\VITAMIN A\VITAMIN D
  5. CYCLOBENZAPRINE. [Concomitant]
     Active Substance: CYCLOBENZAPRINE

REACTIONS (30)
  - Gait disturbance [None]
  - Constipation [None]
  - Dry skin [None]
  - Confusional state [None]
  - Photosensitivity reaction [None]
  - Hallucination [None]
  - Memory impairment [None]
  - Abdominal discomfort [None]
  - Emotional distress [None]
  - Rash erythematous [None]
  - Extremity contracture [None]
  - Fatigue [None]
  - Wound [None]
  - Asthenia [None]
  - Neuropathy peripheral [None]
  - Diplopia [None]
  - Dry mouth [None]
  - Skin fissures [None]
  - Peripheral swelling [None]
  - Paraesthesia [None]
  - Loss of consciousness [None]
  - Vision blurred [None]
  - Burning sensation [None]
  - Oedema peripheral [None]
  - Cachexia [None]
  - Dizziness [None]
  - Balance disorder [None]
  - Blister [None]
  - Insomnia [None]
  - Panic disorder [None]

NARRATIVE: CASE EVENT DATE: 20190816
